FAERS Safety Report 9485057 (Version 2)
Quarter: 2013Q3

REPORT INFORMATION
  Report Type: Report from Study
  Country: US (occurrence: US)
  Receive Date: 20130828
  Receipt Date: 20130828
  Transmission Date: 20140515
  Serious: No
  Sender: FDA-Public Use
  Company Number: US-ABBOTT-13P-163-1113641-00

PATIENT
  Age: 59 Year
  Sex: Male

DRUGS (6)
  1. ANDROGEL [Suspect]
     Indication: BLOOD TESTOSTERONE DECREASED
     Route: 061
     Dates: start: 201303, end: 201304
  2. ANDROGEL [Suspect]
     Route: 061
     Dates: start: 201304, end: 201305
  3. ANDROGEL [Suspect]
     Route: 061
     Dates: start: 201305
  4. CLONAZEPAM [Concomitant]
     Indication: PRODUCT USED FOR UNKNOWN INDICATION
  5. PROPANOLOL [Concomitant]
     Indication: PRODUCT USED FOR UNKNOWN INDICATION
  6. PROTONIX [Concomitant]
     Indication: PRODUCT USED FOR UNKNOWN INDICATION

REACTIONS (3)
  - Male sexual dysfunction [Not Recovered/Not Resolved]
  - Blood testosterone abnormal [Unknown]
  - Overdose [Unknown]
